FAERS Safety Report 13017470 (Version 1)
Quarter: 2016Q4

REPORT INFORMATION
  Report Type: Spontaneous
  Country: US (occurrence: US)
  Receive Date: 20161212
  Receipt Date: 20161212
  Transmission Date: 20170207
  Serious: No
  Sender: FDA-Public Use
  Company Number: US-VIIV HEALTHCARE LIMITED-US2016181920

PATIENT
  Age: 60 Year
  Sex: Male

DRUGS (3)
  1. TIVICAY [Suspect]
     Active Substance: DOLUTEGRAVIR SODIUM
     Indication: HIV INFECTION
     Dosage: 50 MG, QD
     Route: 048
  2. NORVIR [Concomitant]
     Active Substance: RITONAVIR
  3. REYATAZ [Concomitant]
     Active Substance: ATAZANAVIR SULFATE

REACTIONS (1)
  - Gynaecomastia [Unknown]
